FAERS Safety Report 7421670-X (Version None)
Quarter: 2011Q1

REPORT INFORMATION
  Report Type: 
  Country: None (occurrence: None)
  Receive Date: 20110302
  Receipt Date: 20101216
  Transmission Date: 20110831
  Serious: No
  Sender: FDA-Public Use
  Company Number: 021639

PATIENT
  Sex: Female

DRUGS (7)
  1. CIMZIA [Suspect]
     Indication: CROHN'S DISEASE
     Dosage: 200 MG 1X/WEEK SUBCUTANEOUS, SUBCUTANEOUS, 200 MG 1X/2 WEEKS  SUBCUTANEOUS
     Route: 058
     Dates: start: 20090429
  2. CIMZIA [Suspect]
     Indication: CROHN'S DISEASE
     Dosage: 200 MG 1X/WEEK SUBCUTANEOUS, SUBCUTANEOUS, 200 MG 1X/2 WEEKS  SUBCUTANEOUS
     Route: 058
     Dates: start: 20090429
  3. CIMZIA [Suspect]
     Indication: CROHN'S DISEASE
     Dosage: 200 MG 1X/WEEK SUBCUTANEOUS, SUBCUTANEOUS, 200 MG 1X/2 WEEKS  SUBCUTANEOUS
     Route: 058
     Dates: start: 20081023
  4. IMURAN [Concomitant]
  5. PREDNISONE [Concomitant]
  6. CIMZIA [Suspect]
  7. CIMZIA [Suspect]

REACTIONS (4)
  - DYSPEPSIA [None]
  - CONTUSION [None]
  - ANAEMIA [None]
  - INCREASED TENDENCY TO BRUISE [None]
